FAERS Safety Report 16361141 (Version 1)
Quarter: 2019Q2

REPORT INFORMATION
  Report Type: Spontaneous
  Country: PL (occurrence: PL)
  Receive Date: 20190528
  Receipt Date: 20190528
  Transmission Date: 20190711
  Serious: Yes (Death, Life-Threatening, Disabling, Other)
  Sender: FDA-Public Use
  Company Number: PL-TEVA-2019-PL-1054430

PATIENT
  Age: 67 Year
  Sex: Female
  Weight: 70 kg

DRUGS (33)
  1. BETALOC [Concomitant]
     Active Substance: METOPROLOL TARTRATE
     Dosage: DOSE: 20 MG/DAY
     Route: 042
     Dates: start: 20181015, end: 20181015
  2. FINOSPIRIN [Concomitant]
     Dosage: DOSE: 50 MG/DAY
     Route: 048
     Dates: start: 20181023, end: 20181115
  3. VANCOMYCIN [Suspect]
     Active Substance: VANCOMYCIN
     Indication: PROTEUS INFECTION
  4. IPP 40 MG PROSZEK DO SPORZADZANIA ROZTWORU DO WSTRZYKIWAN [Concomitant]
     Dosage: DOSE: 40 MG/DAY FROM 15/10/2018 TO 15/11/2018?80 MG/DAY FROM 16/11/2018 TO 25/11/2018
     Route: 042
     Dates: start: 20181015, end: 20181115
  5. DEXAVEN 4 MG/ML [Concomitant]
     Dosage: DOSE: 8 MG/DAY
     Route: 042
     Dates: start: 20181122, end: 20181125
  6. SODIUM BICARBONATE. [Concomitant]
     Active Substance: SODIUM BICARBONATE
     Dosage: DOSE: 100 MG
     Route: 042
     Dates: start: 20181115, end: 20181118
  7. PARACETAMOL [Concomitant]
     Active Substance: ACETAMINOPHEN
     Dosage: DOSE: 1 G/DAY
     Route: 042
     Dates: start: 20181015, end: 20181015
  8. VITACON 10 MG/ML ROZTWOR DO WSTRZYKIWAN [Concomitant]
     Dosage: DOSE: 2G/200 ML
     Route: 042
     Dates: start: 20181117, end: 20181117
  9. VANCOMYCIN [Suspect]
     Active Substance: VANCOMYCIN
     Indication: SERRATIA INFECTION
  10. MEROPENEM. [Concomitant]
     Active Substance: MEROPENEM
     Dosage: DOSE: 3G/DAY/300 ML
     Route: 042
     Dates: start: 20181014, end: 20181020
  11. VANCOMYCIN [Suspect]
     Active Substance: VANCOMYCIN
     Indication: CLOSTRIDIUM DIFFICILE INFECTION
     Dosage: DATES OF DRUG ADMINISTRATION AND DOSAGE: 1,5 G/DAY ON 27/10/2018. FROM 28/10/2018 TO 09/11/2018 1G/D
     Route: 048
  12. LEVONOR 1 MG/ML [Concomitant]
     Route: 042
  13. KWETAPLEX [Concomitant]
     Active Substance: QUETIAPINE FUMARATE
     Dosage: DOSE: 50 MG/DAY
     Route: 048
     Dates: start: 20181017, end: 20181101
  14. VIREGYT-K 100 MG KAPSULKI [Concomitant]
     Dosage: DOSE: 50 MG/DAY
     Route: 048
     Dates: start: 20181024, end: 20181114
  15. OXYNORM [Concomitant]
     Active Substance: OXYCODONE HYDROCHLORIDE
     Dosage: DOSAGE: 2 MG/HOUR. DATES OF DRUG ADMINISTRATION: FROM 12/10/2018 TO 18/10/2018; FROM 15/11/2018 TO 2
     Route: 042
  16. GENSULIN R 100 IU/ML [Suspect]
     Active Substance: INSULIN HUMAN
     Indication: DIABETES MELLITUS
     Route: 042
  17. IMIPENEM/CILASTATIN KABI [Suspect]
     Active Substance: CILASTATIN SODIUM\IMIPENEM
     Dosage: DOSAGE: 4 G/DAY
     Route: 042
     Dates: start: 20181117, end: 20181125
  18. FUROSEMID [Concomitant]
     Active Substance: FUROSEMIDE
     Dosage: DOSAGE: 40 MG/DAY
     Route: 042
     Dates: start: 20181024, end: 20181024
  19. MEMOTROPIL [Concomitant]
     Active Substance: PIRACETAM
     Dosage: DOSE: 2.4 G/DAY. DATE OF DRUG ADMINISTRATION: 24/10/2018-15/11/2018; 16/11/2018-25/11/2018
     Route: 042
  20. VANCOMYCIN [Suspect]
     Active Substance: VANCOMYCIN
     Indication: STENOTROPHOMONAS INFECTION
     Dosage: DATES OF DRUG ADMINISTRATION: 15/10/2018-21/10/2018 WITH BREAKS DESCRIBED IN CASE NARRATIVE. FROM 24
  21. CLEXANE 4000 IU [Concomitant]
     Dosage: NO INFORMATION ON DOSAGE
     Route: 042
     Dates: start: 20181015, end: 20181115
  22. METOCARD ZK 95 MG [Concomitant]
     Dosage: DOSE: 95 MG
     Route: 048
     Dates: start: 20181016, end: 20181115
  23. VANCOMYCIN [Suspect]
     Active Substance: VANCOMYCIN
     Indication: STAPHYLOCOCCAL INFECTION
  24. MORPHINE [Suspect]
     Active Substance: MORPHINE
     Dosage: DOSAGE: 60 MG+5 MG/H FOR 17 HOURS=145 MG/DAY
     Route: 042
     Dates: start: 20181124, end: 20181125
  25. FUROSEMID [Concomitant]
     Active Substance: FUROSEMIDE
     Dosage: DOSAGE: 5 MG/HOUR
     Route: 042
     Dates: start: 20181013, end: 20181023
  26. CORHYDRON [Concomitant]
     Dosage: DOSE: 400 MG/DAY
     Dates: start: 20181116, end: 20181121
  27. PYRALGIN [METAMIZOLE SODIUM] [Concomitant]
     Active Substance: METAMIZOLE SODIUM
     Dosage: DOSE: 2.5 MG/100 ML ON 15/10/2018?           2.5 MG/100 ML ON 01/11/2018 (IF NECESSARY)
     Route: 042
  28. CORDARONE [Concomitant]
     Active Substance: AMIODARONE HYDROCHLORIDE
     Dosage: DOSE: 900 MG/DAY
     Route: 041
     Dates: start: 20181115, end: 20181118
  29. AMANTIX [Concomitant]
     Dosage: DOSE: 500 ML (5H INFUSION)
     Route: 042
     Dates: start: 20181115, end: 20181117
  30. VANCOMYCIN [Suspect]
     Active Substance: VANCOMYCIN
     Indication: KLEBSIELLA INFECTION
  31. DIGOXIN. [Concomitant]
     Active Substance: DIGOXIN
     Dosage: DOSE: 1 G
     Route: 042
     Dates: start: 20181015, end: 20181015
  32. COSMOFER 50 MG/ML [Concomitant]
     Dosage: DOSE: 1G/100 ML
     Route: 042
     Dates: start: 20181017, end: 20181019
  33. HEPA-MERZ (ORNITHINE ASPARTATE) [Concomitant]
     Active Substance: ORNITHINE ASPARTATE
     Dosage: DOSE: 20 MG/DAY
     Route: 041
     Dates: start: 20181116, end: 20181125

REACTIONS (31)
  - Hypoglycaemia [Fatal]
  - Oliguria [Fatal]
  - Hepatitis fulminant [Fatal]
  - Bradycardia [Fatal]
  - Central nervous system injury [Fatal]
  - Splenic injury [Fatal]
  - Blood creatinine increased [Fatal]
  - Petechiae [Fatal]
  - Drug level above therapeutic [Fatal]
  - Thrombocytopenia [Fatal]
  - Hyperchloraemia [Fatal]
  - Renal injury [Fatal]
  - Tachycardia [Fatal]
  - Hyperkalaemia [Fatal]
  - Macrocytosis [Fatal]
  - Acidosis [Fatal]
  - Tachyarrhythmia [Fatal]
  - Hypotonia [Fatal]
  - Hyperaemia [Fatal]
  - Anisocytosis [Fatal]
  - Loss of consciousness [Fatal]
  - Hypochromasia [Fatal]
  - Blood pressure decreased [Fatal]
  - Hypoxia [Fatal]
  - Haemoglobin decreased [Fatal]
  - Red blood cell count decreased [Fatal]
  - Liver injury [Fatal]
  - Blood bilirubin increased [Fatal]
  - Haemolytic anaemia [Fatal]
  - Blood urea increased [Fatal]
  - Creatinine renal clearance decreased [Fatal]

NARRATIVE: CASE EVENT DATE: 20181017
